FAERS Safety Report 8514721-2 (Version None)
Quarter: 2012Q3

REPORT INFORMATION
  Report Type: 
  Country: None (occurrence: None)
  Receive Date: 20120717
  Receipt Date: 20120706
  Transmission Date: 20120928
  Serious: Yes (Death, Hospitalization)
  Sender: FDA-Public Use
  Company Number: US-SANOFI-AVENTIS-2012SA047259

PATIENT
  Age: 72 Year
  Sex: Male
  Weight: 65.03 kg

DRUGS (17)
  1. LOMOTIL [Concomitant]
     Dates: start: 20120511
  2. ATROPINE [Concomitant]
  3. INSULIN ASPART [Concomitant]
  4. SODIUM CHLORIDE [Concomitant]
     Dates: start: 20120512, end: 20120529
  5. ELOXATIN [Suspect]
     Indication: GASTRIC CANCER
     Route: 042
     Dates: start: 20120127, end: 20120127
  6. BLINDED THERAPY [Suspect]
     Indication: GASTRIC CANCER
     Route: 042
     Dates: start: 20120127
  7. LEUCOVORIN CALCIUM [Suspect]
     Indication: GASTRIC CANCER
     Route: 042
     Dates: start: 20120127
  8. DECADRON [Concomitant]
  9. BLINDED THERAPY [Suspect]
     Route: 042
     Dates: end: 20120502
  10. FLUOROURACIL [Suspect]
     Dosage: 400 MG/M2 IV BOLUS FOLLOWED BY 2400 MG/M2 CONTINUOUS IV FOR 46-48 HOURS
     Route: 042
     Dates: end: 20120502
  11. DIPHENOXYLATE [Concomitant]
  12. DEXTROSE 5% AND SODIUM CHLORIDE 0.45% IN PLASTIC CONTAINER [Concomitant]
     Dates: start: 20120530, end: 20120530
  13. OCTREOTIDE ACETATE [Concomitant]
     Dates: start: 20120513, end: 20120527
  14. ELOXATIN [Suspect]
     Route: 042
     Dates: start: 20120502, end: 20120502
  15. FLUOROURACIL [Suspect]
     Indication: GASTRIC CANCER
     Dosage: 400 MG/M2 IV BOLUS FOLLOWED BY 2400 MG/M2 CONTINUOUS IV FOR 46-48 HOURS
     Route: 042
     Dates: start: 20120127
  16. KYTRIL [Concomitant]
     Dates: start: 20120127
  17. LEUCOVORIN CALCIUM [Suspect]
     Route: 042
     Dates: end: 20120502

REACTIONS (4)
  - DEATH [None]
  - HYPOTENSION [None]
  - ASTHENIA [None]
  - NAUSEA [None]
